FAERS Safety Report 5455140-5 (Version None)
Quarter: 2007Q3

REPORT INFORMATION
  Report Type: 
  Country: None (occurrence: None)
  Receive Date: 20070913
  Receipt Date: 20070913
  Transmission Date: 20080115
  Serious: Yes (Hospitalization)
  Sender: FDA-Public Use
  Company Number: None

PATIENT
  Age: 74 Year
  Sex: Male

DRUGS (2)
  1. TRIAMTERENE AND HYDROCHLOROTHIAZIDE [Suspect]
     Indication: NEOPLASM MALIGNANT
     Dosage: 1TAB EVERY DAY PO
     Route: 048
     Dates: start: 19950401, end: 20070901
  2. IMATINIB [Suspect]
     Dosage: 400MG EVERY DAY PO
     Route: 048
     Dates: start: 20070501

REACTIONS (1)
  - RENAL FAILURE ACUTE [None]
